FAERS Safety Report 4439517-2 (Version None)
Quarter: 2004Q3

REPORT INFORMATION
  Report Type: 
  Country: None (occurrence: None)
  Receive Date: 20040830
  Receipt Date: 20040817
  Transmission Date: 20050211
  Serious: Yes (Other)
  Sender: FDA-Public Use
  Company Number: 2004054285

PATIENT
  Age: 37 Year
  Sex: Female

DRUGS (4)
  1. FLUCONAZOLE [Suspect]
     Indication: ORAL FUNGAL INFECTION
     Dosage: 50 MG, ORAL
     Route: 048
     Dates: start: 20040714, end: 20040701
  2. OROPIVALONE BACITRACINE (BACITRACIN ZINC, TIXOCORTOL) [Suspect]
     Indication: ILL-DEFINED DISORDER
  3. MICONAZOLE [Concomitant]
  4. BETAMETHASONE [Concomitant]

REACTIONS (13)
  - ABORTION INDUCED [None]
  - BURN OESOPHAGEAL [None]
  - DIZZINESS [None]
  - DRUG EXPOSURE DURING PREGNANCY [None]
  - DRUG HYPERSENSITIVITY [None]
  - FUNGAL INFECTION [None]
  - INFLAMMATION LOCALISED [None]
  - MALAISE [None]
  - NAUSEA [None]
  - OEDEMA MOUTH [None]
  - SERUM FERRITIN DECREASED [None]
  - TONSILLAR DISORDER [None]
  - TOOTH DISORDER [None]
